FAERS Safety Report 13403131 (Version 1)
Quarter: 2017Q2

REPORT INFORMATION
  Report Type: Spontaneous
  Country: US (occurrence: US)
  Receive Date: 20170404
  Receipt Date: 20170404
  Transmission Date: 20170830
  Serious: Yes (Other)
  Sender: FDA-Public Use
  Company Number: None

PATIENT
  Age: 73 Year
  Sex: Male

DRUGS (1)
  1. LENVATINIB [Suspect]
     Active Substance: LENVATINIB
     Indication: THYROID CANCER METASTATIC
     Dates: start: 20160511, end: 20170111

REACTIONS (4)
  - Weight decreased [None]
  - Nausea [None]
  - Therapy change [None]
  - Vomiting [None]

NARRATIVE: CASE EVENT DATE: 20170105
